FAERS Safety Report 12156972 (Version 1)
Quarter: 2016Q1

REPORT INFORMATION
  Report Type: Other
  Country: US (occurrence: US)
  Receive Date: 20160307
  Receipt Date: 20160307
  Transmission Date: 20160526
  Serious: Yes (Other)
  Sender: FDA-Public Use
  Company Number: US-GUTHY-RENKER LLC-1048771

PATIENT
  Age: 13 Year
  Sex: Female

DRUGS (4)
  1. PROACTIV SOLUTION OIL FREE MOISTURE SPF 15 MOISTURIZER [Suspect]
     Active Substance: OCTINOXATE\ZINC OXIDE
     Route: 061
     Dates: start: 20160125, end: 20160212
  2. PROACTIV SOLUTION RENEWING CLEANSER [Suspect]
     Active Substance: BENZOYL PEROXIDE
     Indication: ACNE
     Route: 061
     Dates: start: 20160125, end: 20160212
  3. PROACTIV SOLUTION ADVANCED DAILY OIL CONTROL [Suspect]
     Active Substance: SALICYLIC ACID
     Route: 061
     Dates: start: 20160125, end: 20160212
  4. PROACTIV REPAIRING TREATMENT [Suspect]
     Active Substance: BENZOYL PEROXIDE
     Route: 061
     Dates: start: 20160125, end: 20160212

REACTIONS (7)
  - Skin exfoliation [Not Recovered/Not Resolved]
  - Lip infection [None]
  - Mouth swelling [None]
  - Drug ineffective [None]
  - Application site exfoliation [None]
  - Eye swelling [None]
  - Application site swelling [None]

NARRATIVE: CASE EVENT DATE: 20160212
